FAERS Safety Report 9232032 (Version 1)
Quarter: 2013Q2

REPORT INFORMATION
  Report Type: Spontaneous
  Country: US (occurrence: US)
  Receive Date: 20130415
  Receipt Date: 20130415
  Transmission Date: 20140414
  Serious: No
  Sender: FDA-Public Use
  Company Number: US-PFIZER INC-2013114115

PATIENT
  Sex: Female

DRUGS (3)
  1. LEVOXYL [Suspect]
     Dosage: 112 UG, 1X/DAY
  2. LEVOXYL [Suspect]
     Dosage: 100 UG, 1X/DAY
     Dates: start: 20130406, end: 20130408
  3. LEVOTHYROXINE SODIUM [Suspect]
     Dosage: 112 UG, 1X/DAY
     Dates: end: 201304

REACTIONS (5)
  - Rash [Unknown]
  - Rash generalised [Unknown]
  - Pain [Unknown]
  - Pruritus [Unknown]
  - Irritability [Unknown]
